FAERS Safety Report 9299303 (Version 1)
Quarter: 2013Q2

REPORT INFORMATION
  Report Type: Spontaneous
  Country: TW (occurrence: TW)
  Receive Date: 20130520
  Receipt Date: 20130520
  Transmission Date: 20140414
  Serious: Yes (Hospitalization, Other)
  Sender: FDA-Public Use
  Company Number: PHHY2013TW048755

PATIENT
  Age: 79 Year
  Sex: Male
  Weight: 75 kg

DRUGS (2)
  1. METOCLOPRAMIDE [Suspect]
     Indication: GASTROOESOPHAGEAL REFLUX DISEASE
     Dosage: 10 MG, I.V. BOLUS FOR OVER 1 MINUTE
     Route: 041
  2. METOCLOPRAMIDE [Suspect]
     Dosage: 10 MG, BY PUSH EVERY EIGHT HOURS
     Route: 042

REACTIONS (4)
  - Akathisia [Recovered/Resolved]
  - Restlessness [Recovered/Resolved]
  - Dyskinesia [Recovered/Resolved]
  - Incorrect drug administration rate [Unknown]
